FAERS Safety Report 5953914-5 (Version None)
Quarter: 2008Q4

REPORT INFORMATION
  Report Type: 
  Country: None (occurrence: None)
  Receive Date: 20081114
  Receipt Date: 20081029
  Transmission Date: 20090506
  Serious: Yes (Other)
  Sender: FDA-Public Use
  Company Number: JP-PFIZER INC-2008084914

PATIENT
  Sex: Male

DRUGS (3)
  1. GABAPEN [Suspect]
     Indication: EPILEPSY
     Route: 048
     Dates: start: 20071211
  2. DEPAKENE [Suspect]
     Indication: EPILEPSY
     Dosage: DAILY DOSE:1400MG
     Route: 048
     Dates: start: 19921218
  3. ALEVIATIN [Concomitant]
     Route: 048
     Dates: start: 19900622

REACTIONS (1)
  - HYPERAMMONAEMIA [None]
